FAERS Safety Report 5535492-8 (Version None)
Quarter: 2007Q4

REPORT INFORMATION
  Report Type: 
  Country: None (occurrence: None)
  Receive Date: 20071206
  Receipt Date: 20071109
  Transmission Date: 20080405
  Serious: Yes (Death, Hospitalization)
  Sender: FDA-Public Use
  Company Number: DE-ROCHE-525680

PATIENT
  Sex: Male
  Weight: 67 kg

DRUGS (5)
  1. CAPECITABINE [Suspect]
     Indication: PANCREATIC CARCINOMA
     Route: 048
     Dates: start: 20071009, end: 20071014
  2. PANTOPRAZOLE SODIUM [Concomitant]
     Dates: start: 20071014, end: 20071015
  3. BISACODYL [Concomitant]
     Dates: start: 20071014, end: 20071015
  4. TRAMAL LONG [Concomitant]
     Dates: start: 20071015
  5. FRAXIPARIN [Concomitant]
     Dates: start: 20070917, end: 20071015

REACTIONS (1)
  - PANCREATIC CARCINOMA [None]
